FAERS Safety Report 12522837 (Version 3)
Quarter: 2016Q3

REPORT INFORMATION
  Report Type: Report from Study
  Country: US (occurrence: US)
  Receive Date: 20160701
  Receipt Date: 20160810
  Transmission Date: 20161109
  Serious: Yes (Hospitalization, Other)
  Sender: FDA-Public Use
  Company Number: PHEH2016US015743

PATIENT
  Age: 54 Year
  Sex: Female
  Weight: 79.6 kg

DRUGS (14)
  1. GILENYA [Suspect]
     Active Substance: FINGOLIMOD HYDROCHLORIDE
     Dosage: 0.5 MG, UNK
     Route: 048
  2. ERGOCALCIFEROL. [Concomitant]
     Active Substance: ERGOCALCIFEROL
     Indication: PRODUCT USED FOR UNKNOWN INDICATION
     Dosage: 50000 IU, QWEEK X TOTAL 8 WEEKS, FURTHUR DOSING BASED ON REPEAT LEVELS
     Route: 048
  3. TYSABRI [Concomitant]
     Active Substance: NATALIZUMAB
     Indication: PRODUCT USED FOR UNKNOWN INDICATION
     Dosage: 300 MG, QW4
     Route: 042
  4. VALPROIC ACID. [Concomitant]
     Active Substance: VALPROIC ACID
     Indication: PRODUCT USED FOR UNKNOWN INDICATION
     Route: 065
  5. DEPAKOTE [Concomitant]
     Active Substance: DIVALPROEX SODIUM
     Indication: SEIZURE
  6. ZANTAC [Concomitant]
     Active Substance: RANITIDINE HYDROCHLORIDE
     Indication: PRODUCT USED FOR UNKNOWN INDICATION
     Dosage: 75 MG, QD
     Route: 048
  7. DEPAKOTE [Concomitant]
     Active Substance: DIVALPROEX SODIUM
     Indication: CONFUSIONAL STATE
     Dosage: 500 MG, BID
     Route: 048
  8. CIPRO [Concomitant]
     Active Substance: CIPROFLOXACIN HYDROCHLORIDE
     Indication: PRODUCT USED FOR UNKNOWN INDICATION
     Dosage: 750 MG, BID
     Route: 042
  9. CIPRO [Concomitant]
     Active Substance: CIPROFLOXACIN HYDROCHLORIDE
     Dosage: 3 DF, BID (750 MG BID) X 7 MORE DAYS TO COMPLETE TOTAL OF 14 DAYS
     Route: 048
  10. FISH OIL [Concomitant]
     Active Substance: FISH OIL
     Indication: PRODUCT USED FOR UNKNOWN INDICATION
     Dosage: 1 DF, BID
     Route: 048
  11. GILENYA [Suspect]
     Active Substance: FINGOLIMOD HYDROCHLORIDE
     Indication: MULTIPLE SCLEROSIS
     Dosage: 0.5 MG, UNK
     Route: 048
  12. CALCIUM CARBONATE. [Concomitant]
     Active Substance: CALCIUM CARBONATE
     Indication: PRODUCT USED FOR UNKNOWN INDICATION
     Dosage: 500 MG, TID (AFTER MEALS)
     Route: 048
  13. BACLOFEN. [Concomitant]
     Active Substance: BACLOFEN
     Indication: PRODUCT USED FOR UNKNOWN INDICATION
     Dosage: 2 DF, QID
     Route: 048
  14. MULTI VIT [Concomitant]
     Indication: PRODUCT USED FOR UNKNOWN INDICATION
     Dosage: 1 DF, QD
     Route: 048

REACTIONS (34)
  - Confusional state [Recovering/Resolving]
  - Asthenia [Unknown]
  - Disorientation [Unknown]
  - Loss of consciousness [Unknown]
  - Dyskinesia [Unknown]
  - Ammonia increased [Unknown]
  - Metabolic encephalopathy [Unknown]
  - Tachycardia [Unknown]
  - Memory impairment [Unknown]
  - Seizure [Recovered/Resolved]
  - Urinary tract infection [Unknown]
  - Dehydration [Unknown]
  - Vitamin D deficiency [Unknown]
  - Lethargy [Unknown]
  - Muscle spasms [Unknown]
  - Facial paralysis [Unknown]
  - Muscle twitching [Unknown]
  - Drooling [Unknown]
  - Klebsiella sepsis [Unknown]
  - Mitral valve prolapse [Unknown]
  - Pruritus [Unknown]
  - Emotional disorder [Unknown]
  - Multiple sclerosis [Unknown]
  - Mental status changes [Unknown]
  - Amnesia [Unknown]
  - Partial seizures [Unknown]
  - Vertigo [Unknown]
  - Dysuria [Unknown]
  - White blood cell count increased [Unknown]
  - Hypocalcaemia [Unknown]
  - Muscle rigidity [Unknown]
  - Tremor [Recovered/Resolved]
  - Hemiparesis [Unknown]
  - Cardiac murmur [Unknown]

NARRATIVE: CASE EVENT DATE: 20160504
